FAERS Safety Report 8133329-4 (Version None)
Quarter: 2012Q1

REPORT INFORMATION
  Report Type: 
  Country: None (occurrence: None)
  Receive Date: 20120213
  Receipt Date: 20120201
  Transmission Date: 20120608
  Serious: Yes (Other)
  Sender: FDA-Public Use
  Company Number: DE-UCBSA-037989

PATIENT
  Sex: Female

DRUGS (1)
  1. KEPPRA [Suspect]
     Dosage: TREATED WITH KEPPRA FOR 2.5 YEARS, 1500 MG

REACTIONS (2)
  - HYPONATRAEMIA [None]
  - EPILEPSY [None]
